FAERS Safety Report 5464369-1 (Version None)
Quarter: 2007Q3

REPORT INFORMATION
  Report Type: 
  Country: None (occurrence: None)
  Receive Date: 20070921
  Receipt Date: 20070910
  Transmission Date: 20080115
  Serious: Yes (Hospitalization)
  Sender: FDA-Public Use
  Company Number: US-MERCK-0709USA01844

PATIENT
  Age: 76 Year
  Sex: Male

DRUGS (3)
  1. PRINIVIL [Suspect]
     Indication: HYPERTENSION
     Route: 048
     Dates: end: 20050201
  2. MIRAPEX [Suspect]
     Route: 065
     Dates: start: 20050201
  3. MIRAPEX [Suspect]
     Route: 065
     Dates: end: 20050201

REACTIONS (3)
  - HYPOTENSION [None]
  - NAUSEA [None]
  - PRESYNCOPE [None]
